FAERS Safety Report 15547642 (Version 2)
Quarter: 2018Q4

REPORT INFORMATION
  Report Type: Report from Study
  Country: CA (occurrence: CA)
  Receive Date: 20181024
  Receipt Date: 20181114
  Transmission Date: 20190205
  Serious: Yes (Other)
  Sender: FDA-Public Use
  Company Number: CA-SA-2015SA208313

PATIENT
  Age: 41 Year
  Sex: Female
  Weight: 81.65 kg

DRUGS (1)
  1. ALEMTUZUMAB [Suspect]
     Active Substance: ALEMTUZUMAB
     Indication: MULTIPLE SCLEROSIS
     Dosage: 12 MG, QD
     Route: 041
     Dates: start: 20151207, end: 20151209

REACTIONS (37)
  - Cough [Recovered/Resolved]
  - Urine abnormality [Not Recovered/Not Resolved]
  - Pruritus [Recovered/Resolved]
  - White blood cell count decreased [Recovered/Resolved]
  - Basedow^s disease [Unknown]
  - Mean cell haemoglobin decreased [Recovered/Resolved]
  - Red blood cells urine [Recovered/Resolved]
  - Oedema peripheral [Recovered/Resolved]
  - Urine ketone body present [Recovered/Resolved]
  - Platelet count increased [Recovered/Resolved]
  - Pain [Recovered/Resolved]
  - Multiple sclerosis relapse [Recovered/Resolved]
  - Fatigue [Recovering/Resolving]
  - Culture urine positive [Recovered/Resolved]
  - Influenza [Recovered/Resolved]
  - Nasopharyngitis [Recovered/Resolved]
  - Thyroxine free increased [Not Recovered/Not Resolved]
  - White blood cells urine positive [Not Recovered/Not Resolved]
  - Blood creatinine increased [Recovered/Resolved]
  - Diarrhoea [Recovered/Resolved]
  - Nausea [Recovered/Resolved]
  - Headache [Recovered/Resolved]
  - Urine analysis abnormal [Unknown]
  - Stress [Not Recovered/Not Resolved]
  - Productive cough [Recovered/Resolved]
  - Tri-iodothyronine free increased [Not Recovered/Not Resolved]
  - Pneumonia [Recovered/Resolved]
  - Haemoglobin decreased [Recovered/Resolved]
  - Protein urine present [Not Recovered/Not Resolved]
  - Haemoglobin urine [Recovered/Resolved]
  - Lymphocyte count decreased [Recovered/Resolved]
  - Crystal urine present [Not Recovered/Not Resolved]
  - Blood thyroid stimulating hormone decreased [Recovered/Resolved]
  - Mean cell volume decreased [Recovered/Resolved]
  - Red cell distribution width increased [Recovered/Resolved]
  - Escherichia test positive [Recovered/Resolved]
  - Vomiting [Recovered/Resolved]

NARRATIVE: CASE EVENT DATE: 20151207
